FAERS Safety Report 10540349 (Version 5)
Quarter: 2018Q1

REPORT INFORMATION
  Report Type: Report from Study
  Country: CA (occurrence: CA)
  Receive Date: 20141024
  Receipt Date: 20180104
  Transmission Date: 20180508
  Serious: No
  Sender: FDA-Public Use
  Company Number: PHHY2014CA135943

PATIENT
  Age: 49 Year
  Sex: Female

DRUGS (2)
  1. TASIGNA [Suspect]
     Active Substance: NILOTINIB
     Indication: CHRONIC MYELOID LEUKAEMIA
     Dosage: 300 MG, BID
     Route: 048
     Dates: start: 20141008
  2. METROCREME [Concomitant]
     Indication: PRODUCT USED FOR UNKNOWN INDICATION
     Route: 065

REACTIONS (13)
  - Nausea [Unknown]
  - Muscle spasms [Recovered/Resolved]
  - Alopecia [Unknown]
  - Exophthalmos [Unknown]
  - Mass [Unknown]
  - Arthropathy [Unknown]
  - Abdominal pain [Unknown]
  - Rash [Unknown]
  - Constipation [Unknown]
  - Dizziness [Unknown]
  - Skin sensitisation [Unknown]
  - Head discomfort [Unknown]
  - Dyspepsia [Recovered/Resolved]

NARRATIVE: CASE EVENT DATE: 20141009
